FAERS Safety Report 24431412 (Version 2)
Quarter: 2024Q4

REPORT INFORMATION
  Report Type: Spontaneous
  Country: US (occurrence: US)
  Receive Date: 20241014
  Receipt Date: 20241227
  Transmission Date: 20250115
  Serious: Yes (Other)
  Sender: NOVO NORDISK
  Company Number: US-NOVOPROD-1295406

PATIENT
  Age: 56 Year
  Sex: Female
  Weight: 88.45 kg

DRUGS (1)
  1. OZEMPIC [Suspect]
     Active Substance: SEMAGLUTIDE
     Indication: Type 2 diabetes mellitus
     Dosage: 1 MG, QW
     Route: 058
     Dates: start: 20220915, end: 20221226

REACTIONS (4)
  - Obstruction gastric [Not Recovered/Not Resolved]
  - Intestinal obstruction [Not Recovered/Not Resolved]
  - Impaired gastric emptying [Not Recovered/Not Resolved]
  - Product use issue [Unknown]

NARRATIVE: CASE EVENT DATE: 20221001
